FAERS Safety Report 8386394-3 (Version None)
Quarter: 2012Q2

REPORT INFORMATION
  Report Type: 
  Country: None (occurrence: None)
  Receive Date: 20120523
  Receipt Date: 20120523
  Transmission Date: 20120825
  Serious: Yes (Life-Threatening)
  Sender: FDA-Public Use
  Company Number: None

PATIENT
  Age: 85 Year
  Sex: Male
  Weight: 104.3273 kg

DRUGS (1)
  1. LYRICA [Suspect]
     Indication: HERPES ZOSTER
     Dosage: ONE BID PO
     Route: 048
     Dates: start: 20120510, end: 20120510

REACTIONS (2)
  - SLEEP TALKING [None]
  - HALLUCINATIONS, MIXED [None]
